FAERS Safety Report 16333407 (Version 1)
Quarter: 2019Q2

REPORT INFORMATION
  Report Type: Spontaneous
  Country: US (occurrence: US)
  Receive Date: 20190520
  Receipt Date: 20190520
  Transmission Date: 20190711
  Serious: No
  Sender: FDA-Public Use
  Company Number: US-VANDA PHARMACEUTICALS, INC-2019ILOUS001728

PATIENT
  Sex: Male

DRUGS (1)
  1. FANAPT [Suspect]
     Active Substance: ILOPERIDONE
     Indication: SCHIZOPHRENIA
     Dosage: 9 MG, HALF OF 6 MG TABLET IN THE MORNING, ONE 6 MG TABLET IN THE EVENING
     Route: 048
     Dates: start: 2017

REACTIONS (1)
  - Wrong technique in product usage process [Unknown]
